FAERS Safety Report 8429389-3 (Version None)
Quarter: 2012Q2

REPORT INFORMATION
  Report Type: 
  Country: None (occurrence: None)
  Receive Date: 20120522
  Receipt Date: 20120510
  Transmission Date: 20120825
  Serious: Yes (Hospitalization)
  Sender: FDA-Public Use
  Company Number: 2011PROUSA00522

PATIENT
  Age: 73 Year
  Sex: Male
  Weight: 102 kg

DRUGS (6)
  1. PROVENGE [Suspect]
     Indication: PROSTATE CANCER
     Dosage: 250 ML, SINGLE, INTRAVENOUS
     Route: 042
     Dates: start: 20110624, end: 20110624
  2. PROVENGE [Suspect]
     Indication: PROSTATE CANCER
     Dosage: 250 ML, SINGLE, INTRAVENOUS
     Route: 042
     Dates: start: 20110715, end: 20110715
  3. VITAMIN (ASCORBIC ACID, CALCIUM PANTOTHENATE, CALCIUIM PHOSPHATE, ERGO [Concomitant]
  4. LIPITOR [Concomitant]
  5. LISINOPRIL [Concomitant]
  6. PROVENGE [Suspect]

REACTIONS (6)
  - HAEMOGLOBIN DECREASED [None]
  - STAPHYLOCOCCUS TEST POSITIVE [None]
  - PRODUCT QUALITY ISSUE [None]
  - BLOOD CULTURE POSITIVE [None]
  - LABORATORY TEST INTERFERENCE [None]
  - BLOOD PRESSURE SYSTOLIC INCREASED [None]
